FAERS Safety Report 16123472 (Version 2)
Quarter: 2019Q2

REPORT INFORMATION
  Report Type: Report from Study
  Country: US (occurrence: US)
  Receive Date: 20190327
  Receipt Date: 20190501
  Transmission Date: 20190711
  Serious: Yes (Hospitalization, Other)
  Sender: FDA-Public Use
  Company Number: US-GILEAD-2019-0398582

PATIENT
  Age: 43 Year
  Sex: Male
  Weight: 82.54 kg

DRUGS (4)
  1. OXYCODONE [Concomitant]
     Active Substance: OXYCODONE
  2. ADVAIR HFA [Concomitant]
     Active Substance: FLUTICASONE PROPIONATE\SALMETEROL XINAFOATE
  3. LEDIPASVIR/SOFOSBUVIR [Suspect]
     Active Substance: LEDIPASVIR\SOFOSBUVIR
     Indication: CHRONIC HEPATITIS C
     Dosage: 1 TAB BY MOUTH DAILY
     Route: 048
     Dates: start: 20190116
  4. ALCOHOL. [Concomitant]
     Active Substance: ALCOHOL

REACTIONS (7)
  - Acute respiratory failure [Recovering/Resolving]
  - Alcohol withdrawal syndrome [Recovering/Resolving]
  - Product use issue [Unknown]
  - Intentional product use issue [Unknown]
  - Pneumonia viral [Recovered/Resolved]
  - Liver operation [Unknown]
  - Chronic obstructive pulmonary disease [Unknown]

NARRATIVE: CASE EVENT DATE: 201901
